FAERS Safety Report 19700512 (Version 2)
Quarter: 2021Q3

REPORT INFORMATION
  Report Type: Spontaneous
  Country: US (occurrence: US)
  Receive Date: 20210814
  Receipt Date: 20210924
  Transmission Date: 20211014
  Serious: No
  Sender: FDA-Public Use
  Company Number: US-GLAXOSMITHKLINE-USCH2021052588

PATIENT

DRUGS (8)
  1. ADVIL [Suspect]
     Active Substance: IBUPROFEN
     Indication: HEADACHE
  2. ADVIL [Suspect]
     Active Substance: IBUPROFEN
     Indication: HEADACHE
     Dosage: UNK
  3. ADVIL [Suspect]
     Active Substance: IBUPROFEN
     Indication: PYREXIA
  4. ADVIL [Suspect]
     Active Substance: IBUPROFEN
     Indication: MIGRAINE
  5. ADVIL [Suspect]
     Active Substance: IBUPROFEN
     Indication: MYALGIA
  6. TYLENOL [Suspect]
     Active Substance: ACETAMINOPHEN
     Indication: HEADACHE
     Dosage: UNK
  7. EXCEDRIN MIGRAINE [Suspect]
     Active Substance: ACETAMINOPHEN\ASPIRIN\CAFFEINE
     Indication: MIGRAINE
     Dosage: UNK
  8. ADVIL [Suspect]
     Active Substance: IBUPROFEN
     Indication: PAIN
     Dosage: UNK

REACTIONS (7)
  - Drug effect less than expected [Unknown]
  - Drug ineffective for unapproved indication [Unknown]
  - Feeling jittery [Unknown]
  - Nausea [Unknown]
  - Incorrect dose administered [Unknown]
  - Drug ineffective [Unknown]
  - Product use in unapproved indication [Unknown]
